FAERS Safety Report 17830612 (Version 3)
Quarter: 2023Q1

REPORT INFORMATION
  Report Type: Spontaneous
  Country: US (occurrence: US)
  Receive Date: 20200527
  Receipt Date: 20230220
  Transmission Date: 20230418
  Serious: Yes (Other)
  Sender: FDA-Public Use
  Company Number: US-PFIZER INC-2020208306

PATIENT
  Age: 58 Year
  Sex: Female

DRUGS (2)
  1. XELJANZ XR [Suspect]
     Active Substance: TOFACITINIB CITRATE
     Dosage: 11 MG
     Dates: start: 20200303, end: 20200526
  2. XELJANZ XR [Suspect]
     Active Substance: TOFACITINIB CITRATE
     Dosage: 11 MG
     Dates: start: 20200116

REACTIONS (13)
  - Thrombotic thrombocytopenic purpura [Unknown]
  - Drug ineffective [Unknown]
  - Product dose omission issue [Unknown]
  - Arthritis [Not Recovered/Not Resolved]
  - Psoriasis [Not Recovered/Not Resolved]
  - Disease recurrence [Unknown]
  - Joint swelling [Unknown]
  - Joint space narrowing [Unknown]
  - Joint dislocation [Unknown]
  - Peripheral swelling [Unknown]
  - Sacroiliitis [Unknown]
  - Arthritis [Unknown]
  - Musculoskeletal stiffness [Unknown]

NARRATIVE: CASE EVENT DATE: 20210101
